FAERS Safety Report 9961397 (Version 1)
Quarter: 2014Q1

REPORT INFORMATION
  Report Type: Spontaneous
  Country: SE (occurrence: SE)
  Receive Date: 20140305
  Receipt Date: 20140305
  Transmission Date: 20141002
  Serious: Yes (Hospitalization)
  Sender: FDA-Public Use
  Company Number: SE-TEVA-464054ISR

PATIENT
  Age: 35 Year
  Sex: Male

DRUGS (3)
  1. OXASCAND 10MG [Suspect]
  2. IMOVANE 7,5 MG TABLET [Suspect]
  3. PROPAVAN 25 MG TABLET [Suspect]

REACTIONS (1)
  - Toxicity to various agents [Recovered/Resolved]
